FAERS Safety Report 19310103 (Version 1)
Quarter: 2021Q2

REPORT INFORMATION
  Report Type: Spontaneous
  Country: US (occurrence: US)
  Receive Date: 20210526
  Receipt Date: 20210526
  Transmission Date: 20210717
  Serious: Yes (Other)
  Sender: FDA-Public Use
  Company Number: US-ABBVIE-21K-163-3916649-00

PATIENT
  Age: 22 Year
  Sex: Female

DRUGS (1)
  1. ORILISSA [Suspect]
     Active Substance: ELAGOLIX SODIUM
     Indication: PRODUCT USED FOR UNKNOWN INDICATION
     Route: 048

REACTIONS (8)
  - Surgery [Unknown]
  - Uterine leiomyoma [Unknown]
  - Menstruation irregular [Unknown]
  - Quality of life decreased [Unknown]
  - Arthralgia [Unknown]
  - Hot flush [Unknown]
  - Endometriosis [Unknown]
  - Libido decreased [Unknown]

NARRATIVE: CASE EVENT DATE: 201911
